FAERS Safety Report 8247367-4 (Version None)
Quarter: 2012Q1

REPORT INFORMATION
  Report Type: 
  Country: None (occurrence: None)
  Receive Date: 20120330
  Receipt Date: 20120320
  Transmission Date: 20120608
  Serious: Yes (Other)
  Sender: FDA-Public Use
  Company Number: US-SANOFI-AVENTIS-2012SA015409

PATIENT
  Age: 66 Year
  Sex: Male
  Weight: 99 kg

DRUGS (12)
  1. HYDROCHLOROTHIAZIDE [Concomitant]
  2. HYDROCODONE BITARTRATE [Concomitant]
  3. HYDROXYZINE [Concomitant]
  4. CLONIDINE [Concomitant]
  5. MECLIZINE [Concomitant]
  6. LANTUS [Suspect]
     Dosage: DOSE:70 UNIT(S)
     Route: 058
  7. POTASSIUM [Concomitant]
  8. CLONAZEPAM [Concomitant]
  9. ANTIHISTAMINES [Concomitant]
  10. SIMVASTATIN [Concomitant]
  11. SERTRALINE HYDROCHLORIDE [Concomitant]
  12. METOPROLOL SUCCINATE [Concomitant]

REACTIONS (1)
  - PNEUMONIA [None]
